FAERS Safety Report 8107077-0 (Version None)
Quarter: 2012Q1

REPORT INFORMATION
  Report Type: 
  Country: None (occurrence: None)
  Receive Date: 20120202
  Receipt Date: 20120130
  Transmission Date: 20120608
  Serious: Yes (Other)
  Sender: FDA-Public Use
  Company Number: US-PFIZER INC-2012027271

PATIENT
  Sex: Female
  Weight: 106.58 kg

DRUGS (9)
  1. BENZTROPINE MESYLATE [Concomitant]
     Indication: MENTAL DISORDER
     Dosage: 2 MG, 2X/DAY
     Dates: start: 20090101
  2. SEROQUEL [Concomitant]
     Indication: MENTAL DISORDER
  3. CHANTIX [Suspect]
     Dosage: 1 MG, 2X/DAY
     Route: 048
     Dates: start: 20120101
  4. CHANTIX [Suspect]
     Indication: SMOKING CESSATION THERAPY
     Dosage: 0.5 MG, DAILY
     Route: 048
     Dates: start: 20120101, end: 20120101
  5. CHANTIX [Suspect]
     Dosage: 0.5 MG, 2X/DAY
     Route: 048
     Dates: start: 20120101, end: 20120101
  6. ALBUTEROL [Concomitant]
     Indication: ASTHMA
     Dosage: TWO PUFFS 5X/DAY
  7. SEROQUEL [Concomitant]
     Indication: POST-TRAUMATIC STRESS DISORDER
     Dosage: 600 MG, DAILY
     Route: 048
  8. CITALOPRAM [Concomitant]
     Indication: MENTAL DISORDER
     Dosage: 50 MG, DAILY
  9. HALOPERIDOL [Concomitant]
     Indication: MENTAL DISORDER
     Dosage: 5 MG, 2X/DAY

REACTIONS (2)
  - STRESS [None]
  - MENTAL DISORDER [None]
